FAERS Safety Report 13702345 (Version 1)
Quarter: 2017Q2

REPORT INFORMATION
  Report Type: Report from Study
  Country: None (occurrence: US)
  Receive Date: 20170629
  Receipt Date: 20170629
  Transmission Date: 20170830
  Serious: No
  Sender: FDA-Public Use
  Company Number: US-IPSEN BIOPHARMACEUTICALS, INC.-2015-6435

PATIENT
  Sex: Male
  Weight: 32 kg

DRUGS (3)
  1. INCRELEX [Suspect]
     Active Substance: MECASERMIN
     Indication: PRIMARY INSULIN LIKE GROWTH FACTOR-1 DEFICIENCY
     Dosage: NOT REPORTED
     Route: 058
     Dates: start: 20120830
  2. INCRELEX [Suspect]
     Active Substance: MECASERMIN
     Route: 058
     Dates: start: 2015
  3. TESTOSTERONE. [Concomitant]
     Active Substance: TESTOSTERONE
     Indication: DELAYED PUBERTY
     Dosage: NOT REPORTED
     Route: 065
     Dates: start: 201506

REACTIONS (2)
  - Growth retardation [Not Recovered/Not Resolved]
  - Drug dose omission [Unknown]
